FAERS Safety Report 22211771 (Version 1)
Quarter: 2023Q2

REPORT INFORMATION
  Report Type: Spontaneous
  Country: NL (occurrence: NL)
  Receive Date: 20230414
  Receipt Date: 20230414
  Transmission Date: 20230721
  Serious: Yes (Other)
  Sender: FDA-Public Use
  Company Number: None

PATIENT
  Sex: Female
  Weight: 65 kg

DRUGS (2)
  1. QUETIAPINE [Suspect]
     Active Substance: QUETIAPINE
     Indication: Sleep disorder
     Dosage: STRENGTH : 12,5MG / BRAND NAME NOT SPECIFIED, INITIALLY STARTED WITH 25 MG, UNIT DOSE :25 MG, THERAP
     Route: 065
     Dates: start: 20220301
  2. QUETIAPINE [Suspect]
     Active Substance: QUETIAPINE
     Dosage: AND THEN PHASED OUT, UNIT DOSE :  1 DOSAGE FORM, STRENGTH : 12.5 MG
     Route: 065
     Dates: end: 20221101

REACTIONS (4)
  - Depressed mood [Not Recovered/Not Resolved]
  - Anxiety disorder [Not Recovered/Not Resolved]
  - Asthenia [Not Recovered/Not Resolved]
  - Somnolence [Recovered/Resolved]
